FAERS Safety Report 16513936 (Version 2)
Quarter: 2020Q2

REPORT INFORMATION
  Report Type: Spontaneous
  Country: US (occurrence: US)
  Receive Date: 20190701
  Receipt Date: 20200625
  Transmission Date: 20200713
  Serious: No
  Sender: FDA-Public Use
  Company Number: US-ROCHE-2280330

PATIENT
  Sex: Female
  Weight: 46.3 kg

DRUGS (20)
  1. AMANTADINE. [Suspect]
     Active Substance: AMANTADINE HYDROCHLORIDE
     Dosage: DAILY AT BEDTIME
     Route: 048
  2. AZELASTINE HYDROCHLORIDE. [Concomitant]
     Active Substance: AZELASTINE HYDROCHLORIDE
     Indication: DYSKINESIA
     Route: 045
  3. TEMAZEPAM. [Concomitant]
     Active Substance: TEMAZEPAM
     Route: 065
     Dates: end: 201901
  4. AMANTADINE. [Suspect]
     Active Substance: AMANTADINE HYDROCHLORIDE
     Dosage: AT BEDTIME
     Route: 048
  5. KLONOPIN [Suspect]
     Active Substance: CLONAZEPAM
     Indication: PRODUCT USED FOR UNKNOWN INDICATION
     Route: 048
     Dates: start: 201901
  6. GLYCOPYRROLATE [GLYCOPYRRONIUM] [Concomitant]
     Active Substance: GLYCOPYRRONIUM
     Route: 065
     Dates: end: 201901
  7. CYPROHEPTADINE HYDROCHLORIDE. [Concomitant]
     Active Substance: CYPROHEPTADINE HYDROCHLORIDE
  8. CARBIDOPA. [Concomitant]
     Active Substance: CARBIDOPA
     Route: 065
  9. AMOXICILLIN. [Concomitant]
     Active Substance: AMOXICILLIN
  10. AMANTADINE. [Suspect]
     Active Substance: AMANTADINE HYDROCHLORIDE
     Dosage: AT BEDTIME
     Route: 048
     Dates: end: 2019
  11. LORATADINE. [Concomitant]
     Active Substance: LORATADINE
  12. IBUPROFEN. [Concomitant]
     Active Substance: IBUPROFEN
  13. NITROFURANTOIN. [Concomitant]
     Active Substance: NITROFURANTOIN
  14. ASPIRIN [ACETYLSALICYLIC ACID] [Concomitant]
     Active Substance: ASPIRIN
  15. QUETIAPINE FUMARATE. [Concomitant]
     Active Substance: QUETIAPINE FUMARATE
     Route: 065
  16. AMANTADINE. [Suspect]
     Active Substance: AMANTADINE HYDROCHLORIDE
     Indication: DYSKINESIA
     Route: 048
     Dates: start: 20180914
  17. AMANTADINE. [Suspect]
     Active Substance: AMANTADINE HYDROCHLORIDE
     Dosage: AT BED TIME
     Route: 048
     Dates: start: 2019
  18. TRIAZOLAM. [Concomitant]
     Active Substance: TRIAZOLAM
  19. LEVODOPA [Concomitant]
     Active Substance: LEVODOPA
     Route: 065
  20. CIPROFLOXACIN. [Concomitant]
     Active Substance: CIPROFLOXACIN

REACTIONS (5)
  - Initial insomnia [Not Recovered/Not Resolved]
  - Urinary tract infection [Unknown]
  - Hallucination [Recovering/Resolving]
  - Chromaturia [Recovering/Resolving]
  - Drug ineffective [Unknown]
